FAERS Safety Report 4899583-7 (Version None)
Quarter: 2006Q1

REPORT INFORMATION
  Report Type: 
  Country: None (occurrence: None)
  Receive Date: 20060130
  Receipt Date: 20060115
  Transmission Date: 20060701
  Serious: Yes (Other)
  Sender: FDA-Public Use
  Company Number: 2006011332

PATIENT
  Sex: Male

DRUGS (3)
  1. AMLODIPINE [Suspect]
     Indication: ILL-DEFINED DISORDER
     Dosage: ORAL
     Route: 048
  2. COAPPROVEL (HYDROCHLOROTHIAZIDE, IRBESARTAN) [Concomitant]
  3. ISOTEN (BISOPROLOL FUMARATE) [Concomitant]

REACTIONS (1)
  - CUTANEOUS LUPUS ERYTHEMATOSUS [None]
